FAERS Safety Report 10974567 (Version 3)
Quarter: 2015Q2

REPORT INFORMATION
  Report Type: Report from Study
  Country: NL (occurrence: NL)
  Receive Date: 20150401
  Receipt Date: 20150625
  Transmission Date: 20150821
  Serious: Yes (Other)
  Sender: FDA-Public Use
  Company Number: NL-BEH-2015049995

PATIENT

DRUGS (1)
  1. HAEMOCOMPLETTAN P [Suspect]
     Active Substance: FIBRINOGEN HUMAN
     Indication: CARDIAC OPERATION
     Dosage: START/STOP DATE: 24- TO 26-NOV-2014

REACTIONS (6)
  - Mediastinitis [Unknown]
  - Morganella infection [Unknown]
  - Respiratory disorder [Unknown]
  - Klebsiella infection [Unknown]
  - Postoperative thoracic procedure complication [Unknown]
  - Staphylococcal infection [Unknown]

NARRATIVE: CASE EVENT DATE: 2014
